FAERS Safety Report 9204445 (Version 1)
Quarter: 2013Q1

REPORT INFORMATION
  Report Type: Spontaneous
  Country: US (occurrence: None)
  Receive Date: 20120709
  Receipt Date: 20120709
  Transmission Date: 20140127
  Serious: No
  Sender: FDA-Public Use
  Company Number: 2012HGS-003431

PATIENT
  Age: 53 Year
  Sex: Female
  Weight: 83.01 kg

DRUGS (14)
  1. BENLYSTA [Suspect]
     Dosage: 1 IN 28 D
     Route: 041
     Dates: start: 20111201
  2. PLAQUENIL (HYDROXYCHLOROQUINE SULFATE) (HYDROXYCHLOROQUINE SULFATE) [Concomitant]
  3. PREDNISONE (PREDNISONE) (PREDNISONE) [Concomitant]
  4. CELLCEPT (MYCOPHENOLATE MOFETIL) (MYCOPHENOLATE MOFETIL) [Concomitant]
  5. OMEPRAZOLE (OMEPRAZOLE) (OMEPRAZOLE) [Concomitant]
  6. POTASSIUM (POTASSIUM) (POTASSIUM) [Concomitant]
  7. SYNTHYROID (LEVOTHYROXINE SODIUM) (LEVOTHYROXINE SODIUM) [Concomitant]
  8. VITAMIN E (TOCOPHEROL) (TOPPHEROL) [Concomitant]
  9. MULTIVITAMIN (VIGRAN) (ERGOCALCIFEROL, ASCORBIC ACID, PYRIDOXINE HYDROCHLORIDE, THIAMINE HYDROCHLORIDE, RETINOL, RIBOFLAVIN, NICOTINAMIDE, CALCIUM PANTOTHENATE) [Concomitant]
  10. RETASIS (CICLOSPORIN) (CICLOSPORIN) [Concomitant]
  11. RECLAST (ZOLEDRONIC ACID) (ZOLEDRONIC ACID) [Concomitant]
     Dates: start: 20111201
  12. VITAMIN B (VITAMIN B COMPLEX) (VITAMIN B COMPLEX) [Concomitant]
  13. CALCIUM (CALCIUM) (CALCIUM) [Concomitant]
  14. VITAMIN D3 (COLECALCIFEROL) (COLECALCIFEROL) [Concomitant]

REACTIONS (1)
  - Weight increased [None]
